FAERS Safety Report 22047607 (Version 4)
Quarter: 2023Q2

REPORT INFORMATION
  Report Type: Spontaneous
  Country: US (occurrence: US)
  Receive Date: 20230301
  Receipt Date: 20230629
  Transmission Date: 20230721
  Serious: No
  Sender: FDA-Public Use
  Company Number: US-BRISTOL-MYERS SQUIBB COMPANY-2023-026858

PATIENT
  Age: 67 Year
  Sex: Male
  Weight: 115.21 kg

DRUGS (2)
  1. REVLIMID [Suspect]
     Active Substance: LENALIDOMIDE
     Indication: Plasma cell myeloma
     Dosage: DAILY FOR 14 DAYS
     Route: 048
  2. REVLIMID [Suspect]
     Active Substance: LENALIDOMIDE
     Indication: Plasma cell myeloma

REACTIONS (11)
  - Dyspnoea exertional [Unknown]
  - Chest pain [Unknown]
  - Off label use [Unknown]
  - Muscle spasms [Not Recovered/Not Resolved]
  - Dyspnoea [Recovering/Resolving]
  - Rash [Recovered/Resolved]
  - Rash pruritic [Unknown]
  - Muscle discomfort [Unknown]
  - Platelet disorder [Unknown]
  - Back pain [Unknown]
  - Peripheral coldness [Unknown]
